FAERS Safety Report 5640117-7 (Version None)
Quarter: 2008Q1

REPORT INFORMATION
  Report Type: 
  Country: None (occurrence: None)
  Receive Date: 20080226
  Receipt Date: 20080226
  Transmission Date: 20080703
  Serious: Yes (Hospitalization)
  Sender: FDA-Public Use
  Company Number: None

PATIENT
  Age: 37 Year
  Sex: Male
  Weight: 151.0478 kg

DRUGS (2)
  1. RAZADYNE [Suspect]
     Indication: SCHIZOPHRENIA
     Dosage: 12MG TWICE A DAY PO
     Route: 048
     Dates: start: 20071219, end: 20080204
  2. CDP CHOLINE [Suspect]
     Indication: SCHIZOPHRENIA
     Dosage: 1000MG TWICE A DAY PO
     Route: 048
     Dates: start: 20071219, end: 20080204

REACTIONS (2)
  - ANXIETY [None]
  - CARDIAC FAILURE CONGESTIVE [None]
